FAERS Safety Report 9131617 (Version 1)
Quarter: 2013Q1

REPORT INFORMATION
  Report Type: Spontaneous
  Country: US (occurrence: US)
  Receive Date: 20130301
  Receipt Date: 20130301
  Transmission Date: 20140127
  Serious: Yes (Other)
  Sender: FDA-Public Use
  Company Number: US-MYLANLABS-2012S1009654

PATIENT
  Sex: Male

DRUGS (5)
  1. ACCUTANE [Suspect]
     Route: 048
     Dates: start: 20010726, end: 20011026
  2. ACCUTANE [Suspect]
     Route: 048
     Dates: start: 20020102, end: 20020202
  3. ACCUTANE [Suspect]
     Route: 048
     Dates: start: 20021213, end: 20030113
  4. AMNESTEEM CAPSULES [Suspect]
     Route: 048
     Dates: start: 20030109, end: 20030208
  5. AMNESTEEM CAPSULES [Suspect]
     Route: 048
     Dates: start: 20030520, end: 20030620

REACTIONS (1)
  - Inflammatory bowel disease [Not Recovered/Not Resolved]
